FAERS Safety Report 5875358-7 (Version None)
Quarter: 2008Q3

REPORT INFORMATION
  Report Type: 
  Country: None (occurrence: None)
  Receive Date: 20080904
  Receipt Date: 20080820
  Transmission Date: 20090109
  Serious: Yes (Other)
  Sender: FDA-Public Use
  Company Number: 2008AL005463

PATIENT
  Age: 59 Year
  Sex: Male
  Weight: 88.905 kg

DRUGS (10)
  1. DIGOXIN [Suspect]
     Indication: CORONARY ARTERY BYPASS
     Dosage: .125MG,DAILY,PO
     Route: 048
  2. METFORMIN [Concomitant]
  3. ALLOPURINOL [Concomitant]
  4. SPIRONOLACTONE [Concomitant]
  5. DOTHOPHYLLINE [Concomitant]
  6. PROVASTATIN [Concomitant]
  7. ATENOLOL [Concomitant]
  8. BIDIL [Concomitant]
  9. CAPTOPRIL [Concomitant]
  10. GLYBURIDE [Concomitant]

REACTIONS (5)
  - ABDOMINAL DISTENSION [None]
  - BREAST MASS [None]
  - COAGULOPATHY [None]
  - HEPATOMEGALY [None]
  - POST PROCEDURAL SWELLING [None]
